FAERS Safety Report 6064424-1 (Version None)
Quarter: 2009Q1

REPORT INFORMATION
  Report Type: 
  Country: None (occurrence: None)
  Receive Date: 20090203
  Receipt Date: 20090203
  Transmission Date: 20090719
  Serious: Yes (Other)
  Sender: FDA-Public Use
  Company Number: None

PATIENT
  Age: 31 Year
  Sex: Female
  Weight: 68.0396 kg

DRUGS (1)
  1. MIRENA [Suspect]
     Indication: CONTRACEPTION
     Dates: start: 20051227, end: 20081120

REACTIONS (5)
  - ACNE CYSTIC [None]
  - FATIGUE [None]
  - HYPERTRICHOSIS [None]
  - LIBIDO DECREASED [None]
  - WEIGHT INCREASED [None]
